FAERS Safety Report 7701649-0 (Version None)
Quarter: 2011Q3

REPORT INFORMATION
  Report Type: 
  Country: None (occurrence: None)
  Receive Date: 20110822
  Receipt Date: 20110815
  Transmission Date: 20111222
  Serious: Yes (Hospitalization, Other)
  Sender: FDA-Public Use
  Company Number: US-BAYER-201036372NA

PATIENT
  Age: 30 Year
  Sex: Female
  Weight: 84 kg

DRUGS (7)
  1. ONDANSETRON [Concomitant]
     Dosage: 4 MG, UNK
     Dates: start: 20080610
  2. YAZ [Suspect]
     Indication: MENSTRUATION IRREGULAR
  3. YAZ [Suspect]
     Indication: PREMENSTRUAL SYNDROME
  4. ABDEK VITAMINS [Concomitant]
     Indication: VITAMIN SUPPLEMENTATION
     Dosage: UNK UNK, CONT
     Dates: start: 20040101
  5. POLYETH GLYC [Concomitant]
     Dosage: UNK
     Dates: start: 20080609
  6. YAZ [Suspect]
     Indication: HAIR DISORDER
     Dosage: UNK
     Route: 048
     Dates: start: 20080601, end: 20090501
  7. CREON [Concomitant]
     Indication: PANCREATIC DISORDER
     Dosage: UNK UNK, CONT
     Dates: start: 20040101

REACTIONS (3)
  - CHOLELITHIASIS [None]
  - GALLBLADDER DISORDER [None]
  - CHOLECYSTITIS CHRONIC [None]
